FAERS Safety Report 5365069-9 (Version None)
Quarter: 2007Q2

REPORT INFORMATION
  Report Type: 
  Country: None (occurrence: None)
  Receive Date: 20070530
  Receipt Date: 20070125
  Transmission Date: 20071010
  Serious: Yes (Other)
  Sender: FDA-Public Use
  Company Number: 2007PV029008

PATIENT
  Age: 56 Year
  Sex: Female
  Weight: 109.7705 kg

DRUGS (9)
  1. BYETTA [Suspect]
     Indication: DIABETES MELLITUS NON-INSULIN-DEPENDENT
     Dosage: 5 MCG BID SC ; 10 MCG BID SC ; 5 MCG BID SC
     Route: 058
     Dates: start: 20061023, end: 20061201
  2. BYETTA [Suspect]
     Indication: DIABETES MELLITUS NON-INSULIN-DEPENDENT
     Dosage: 5 MCG BID SC ; 10 MCG BID SC ; 5 MCG BID SC
     Route: 058
     Dates: start: 20061213, end: 20070125
  3. BYETTA [Suspect]
     Indication: DIABETES MELLITUS NON-INSULIN-DEPENDENT
     Dosage: 5 MCG BID SC ; 10 MCG BID SC ; 5 MCG BID SC
     Route: 058
     Dates: start: 20070101
  4. ACTOS [Concomitant]
  5. CRESTOR [Concomitant]
  6. LEVOXYL [Concomitant]
  7. GLUCOPHAGE [Concomitant]
  8. PAXIL [Concomitant]
  9. NEXIUM [Concomitant]

REACTIONS (4)
  - BLOOD GLUCOSE INCREASED [None]
  - NAUSEA [None]
  - PANCREATITIS [None]
  - PYREXIA [None]
